FAERS Safety Report 8567053-0 (Version None)
Quarter: 2012Q3

REPORT INFORMATION
  Report Type: 
  Country: None (occurrence: None)
  Receive Date: 20120803
  Receipt Date: 20111206
  Transmission Date: 20120928
  Serious: No
  Sender: FDA-Public Use
  Company Number: US-ABBOTT-11P-163-0881225-00

PATIENT
  Sex: Female
  Weight: 48.124 kg

DRUGS (16)
  1. NIASPAN [Suspect]
  2. SYNTHROID [Concomitant]
     Indication: PRODUCT USED FOR UNKNOWN INDICATION
  3. ORACEA [Concomitant]
     Indication: PRODUCT USED FOR UNKNOWN INDICATION
  4. ASPIRIN [Concomitant]
     Indication: PRODUCT USED FOR UNKNOWN INDICATION
  5. FOLIC ACID [Concomitant]
     Indication: PRODUCT USED FOR UNKNOWN INDICATION
  6. MVT [Concomitant]
     Indication: PRODUCT USED FOR UNKNOWN INDICATION
  7. AMLODIPINE [Concomitant]
     Indication: PRODUCT USED FOR UNKNOWN INDICATION
  8. CLARITIN [Concomitant]
     Indication: PRODUCT USED FOR UNKNOWN INDICATION
  9. NIASPAN [Suspect]
     Indication: BLOOD CHOLESTEROL ABNORMAL
     Dates: end: 20101101
  10. NIASPAN [Suspect]
     Dates: start: 20101101
  11. METOPROLOL TARTRATE [Concomitant]
     Indication: PRODUCT USED FOR UNKNOWN INDICATION
  12. ALPRAZOLAM [Concomitant]
     Indication: PRODUCT USED FOR UNKNOWN INDICATION
  13. PRAVASTATIN [Concomitant]
     Indication: PRODUCT USED FOR UNKNOWN INDICATION
  14. NIASPAN [Suspect]
     Dates: end: 20110101
  15. NIASPAN [Suspect]
     Dates: start: 20110101
  16. VITAMIN D [Concomitant]
     Indication: PRODUCT USED FOR UNKNOWN INDICATION

REACTIONS (1)
  - OEDEMA PERIPHERAL [None]
